FAERS Safety Report 11444404 (Version 5)
Quarter: 2015Q4

REPORT INFORMATION
  Report Type: Report from Study
  Country: US (occurrence: US)
  Receive Date: 20150902
  Receipt Date: 20151231
  Transmission Date: 20160304
  Serious: No
  Sender: FDA-Public Use
  Company Number: PHEH2015US011608

PATIENT
  Age: 60 Year
  Sex: Female
  Weight: 60.32 kg

DRUGS (2)
  1. GILENYA [Suspect]
     Active Substance: FINGOLIMOD HYDROCHLORIDE
     Indication: MULTIPLE SCLEROSIS
     Dosage: 0.5 MG, QD
     Route: 048
     Dates: start: 20110818
  2. AMITRIPTYLINE [Concomitant]
     Active Substance: AMITRIPTYLINE
     Indication: PRODUCT USED FOR UNKNOWN INDICATION
     Dosage: UNK
     Route: 065

REACTIONS (12)
  - Insomnia [Unknown]
  - Anxiety [Recovering/Resolving]
  - Pain [Unknown]
  - Fall [Unknown]
  - Accidental overdose [Unknown]
  - Fatigue [Unknown]
  - Memory impairment [Unknown]
  - Blood pressure decreased [Unknown]
  - Gait disturbance [Unknown]
  - Visual impairment [Unknown]
  - Micturition urgency [Unknown]
  - Tremor [Unknown]

NARRATIVE: CASE EVENT DATE: 20150304
